FAERS Safety Report 5496145-8 (Version None)
Quarter: 2007Q4

REPORT INFORMATION
  Report Type: 
  Country: None (occurrence: None)
  Receive Date: 20071018
  Receipt Date: 20070502
  Transmission Date: 20080405
  Serious: Yes (Hospitalization, Other)
  Sender: FDA-Public Use
  Company Number: 2007036555

PATIENT
  Age: 54 Year
  Sex: Male

DRUGS (1)
  1. NEURONTIN [Suspect]
     Indication: INTERVERTEBRAL DISC PROTRUSION
     Dosage: 300 MG
     Dates: start: 20000101

REACTIONS (5)
  - CHEST PAIN [None]
  - DIZZINESS [None]
  - GASTRIC DISORDER [None]
  - HYPERTENSION [None]
  - SOMNOLENCE [None]
